FAERS Safety Report 4937504-9 (Version None)
Quarter: 2006Q1

REPORT INFORMATION
  Report Type: 
  Country: None (occurrence: None)
  Receive Date: 20060306
  Receipt Date: 20060224
  Transmission Date: 20060701
  Serious: Yes (Other)
  Sender: FDA-Public Use
  Company Number: 2006029005

PATIENT
  Sex: Female
  Weight: 61.2356 kg

DRUGS (1)
  1. BEXTRA [Suspect]
     Indication: PAIN

REACTIONS (3)
  - CARDIAC FIBRILLATION [None]
  - FEELING ABNORMAL [None]
  - INFLUENZA [None]
